FAERS Safety Report 18568135 (Version 1)
Quarter: 2020Q4

REPORT INFORMATION
  Report Type: Spontaneous
  Country: RO (occurrence: RO)
  Receive Date: 20201202
  Receipt Date: 20201202
  Transmission Date: 20210114
  Serious: Yes (Hospitalization, Other)
  Sender: FDA-Public Use
  Company Number: RO-ASTRAZENECA-2020SF59022

PATIENT
  Age: 61 Year
  Sex: Female

DRUGS (6)
  1. SYMBICORT [Suspect]
     Active Substance: BUDESONIDE\FORMOTEROL FUMARATE DIHYDRATE
     Indication: ASTHMA
     Dosage: 160 / 4.5 MCG , 2 INHALATIONS / DAY , UNKNOWN320.0UG UNKNOWN
     Route: 055
  2. PRADAXA [Concomitant]
     Active Substance: DABIGATRAN ETEXILATE MESYLATE
  3. APROVEL [Concomitant]
     Active Substance: IRBESARTAN
  4. TENAXUM [Concomitant]
     Active Substance: RILMENIDINE
  5. VERAPAMIL [Concomitant]
     Active Substance: VERAPAMIL HYDROCHLORIDE
  6. DIUREX [Concomitant]

REACTIONS (1)
  - COVID-19 [Unknown]
